FAERS Safety Report 24459577 (Version 1)
Quarter: 2024Q4

REPORT INFORMATION
  Report Type: Report from Study
  Country: US (occurrence: US)
  Receive Date: 20241018
  Receipt Date: 20241018
  Transmission Date: 20250115
  Serious: No
  Sender: ACADIA PHARMACEUTICALS
  Company Number: US-ACADIA PHARMACEUTICALS INC.-ACA-2024-PIM-005921

PATIENT
  Sex: Male

DRUGS (8)
  1. NUPLAZID [Suspect]
     Active Substance: PIMAVANSERIN TARTRATE
     Indication: Parkinson^s disease
     Dosage: 34 MILLIGRAM, QD
     Route: 048
     Dates: start: 202408
  2. DONEPEZIL [Concomitant]
     Active Substance: DONEPEZIL
  3. MEMANTINE [Concomitant]
     Active Substance: MEMANTINE
  4. DOCUSATE [Concomitant]
     Active Substance: DOCUSATE
  5. GLUCOSAMINE CHONDROITIN [CHONDROITIN SULFATE;GLUCOSAMINE] [Concomitant]
  6. CALCIUM [Concomitant]
     Active Substance: CALCIUM
  7. ASPIRIN [Concomitant]
     Active Substance: ASPIRIN
  8. CARBIDOPA LEVODOPA [Concomitant]
     Active Substance: CARBIDOPA\LEVODOPA

REACTIONS (2)
  - Hallucination [Unknown]
  - Drug ineffective [Unknown]
